FAERS Safety Report 8960494 (Version 1)
Quarter: 2012Q4

REPORT INFORMATION
  Report Type: Spontaneous
  Country: US (occurrence: None)
  Receive Date: 20121207
  Receipt Date: 20121207
  Transmission Date: 20130627
  Serious: Yes (Other)
  Sender: FDA-Public Use
  Company Number: None

PATIENT
  Sex: Female
  Weight: 54.1 kg

DRUGS (1)
  1. SYNTHROID [Suspect]
     Indication: HYPOTHYROIDISM
     Dosage: 50 mcg once daily
     Dates: start: 2011

REACTIONS (4)
  - Hypothyroidism [None]
  - Disease recurrence [None]
  - Drug dispensing error [None]
  - Incorrect dose administered [None]
